FAERS Safety Report 5393697-3 (Version None)
Quarter: 2007Q3

REPORT INFORMATION
  Report Type: 
  Country: None (occurrence: None)
  Receive Date: 20070723
  Receipt Date: 20070711
  Transmission Date: 20080115
  Serious: Yes (Death)
  Sender: FDA-Public Use
  Company Number: FR-PURDUE-USA_2007_0028270

PATIENT
  Age: 69 Year
  Sex: Male

DRUGS (3)
  1. MORPHINE SULFATE [Suspect]
     Indication: DRUG USE FOR UNKNOWN INDICATION
  2. FLUOROURACIL [Suspect]
     Indication: NASOPHARYNGEAL CANCER
  3. CISPLATIN [Suspect]
     Indication: NASOPHARYNGEAL CANCER

REACTIONS (1)
  - INTESTINAL ISCHAEMIA [None]
